FAERS Safety Report 6270451-1 (Version None)
Quarter: 2009Q3

REPORT INFORMATION
  Report Type: 
  Country: None (occurrence: None)
  Receive Date: 20090716
  Receipt Date: 20090713
  Transmission Date: 20100115
  Serious: Yes (Hospitalization)
  Sender: FDA-Public Use
  Company Number: US-BRISTOL-MYERS SQUIBB COMPANY-14684591

PATIENT
  Age: 69 Year
  Sex: Female
  Weight: 61 kg

DRUGS (5)
  1. IXEMPRA KIT [Suspect]
     Indication: BREAST CANCER
     Dosage: INITIAL DOSE:27-APRIL-2009;OVER 1HR ON DAYS 1,8,15.16MG/M2
     Route: 042
     Dates: start: 20090504, end: 20090504
  2. BEVACIZUMAB [Suspect]
     Indication: BREAST CANCER
     Dosage: OVER 30-90 MIN ON DAYS 1 AND 15.10MG/KG
     Route: 042
     Dates: start: 20090427, end: 20090427
  3. CLARITIN [Concomitant]
  4. LISINOPRIL [Concomitant]
  5. LIPITOR [Concomitant]

REACTIONS (1)
  - CONVULSION [None]
